FAERS Safety Report 11459140 (Version 1)
Quarter: 2015Q3

REPORT INFORMATION
  Report Type: Spontaneous
  Country: US (occurrence: US)
  Receive Date: 20150904
  Receipt Date: 20150904
  Transmission Date: 20151125
  Serious: No
  Sender: FDA-Public Use
  Company Number: US-ELI_LILLY_AND_COMPANY-US201508006577

PATIENT
  Sex: Female

DRUGS (1)
  1. CYMBALTA [Suspect]
     Active Substance: DULOXETINE HYDROCHLORIDE
     Indication: NEUROPATHY PERIPHERAL
     Dosage: 1 DF, UNKNOWN
     Route: 065
     Dates: start: 201503

REACTIONS (5)
  - Disturbance in attention [Unknown]
  - Feeling abnormal [Unknown]
  - Off label use [Recovered/Resolved]
  - Intentional product misuse [Recovered/Resolved]
  - Dizziness [Unknown]
